FAERS Safety Report 13879333 (Version 1)
Quarter: 2017Q3

REPORT INFORMATION
  Report Type: Spontaneous
  Country: GB (occurrence: GB)
  Receive Date: 20170817
  Receipt Date: 20170817
  Transmission Date: 20171127
  Serious: Yes (Other)
  Sender: FDA-Public Use
  Company Number: GB-TEVA-795241ACC

PATIENT
  Age: 63 Year
  Sex: Female
  Weight: 55 kg

DRUGS (10)
  1. ATORVASTATIN [Suspect]
     Active Substance: ATORVASTATIN
     Dates: start: 20170508
  2. LANSOPRAZOLE. [Concomitant]
     Active Substance: LANSOPRAZOLE
     Dosage: 1 DOSAGE FORMS DAILY;
     Dates: start: 20170508
  3. OMEPRAZOLE. [Concomitant]
     Active Substance: OMEPRAZOLE
     Dosage: 2 DOSAGE FORMS DAILY;
     Dates: start: 20110418
  4. AMLODIPINE [Concomitant]
     Active Substance: AMLODIPINE BESYLATE
     Dosage: 1 DOSAGE FORMS DAILY;
     Dates: start: 20170606
  5. ESTRADIOL. [Concomitant]
     Active Substance: ESTRADIOL
     Dates: start: 20160413, end: 20170511
  6. LISINOPRIL. [Concomitant]
     Active Substance: LISINOPRIL
     Dosage: 1 DOSAGE FORMS DAILY;
     Dates: start: 20170508, end: 20170606
  7. CETIRIZINE [Concomitant]
     Active Substance: CETIRIZINE HYDROCHLORIDE
     Indication: HYPERSENSITIVITY
     Dosage: ON EXPOSURE TO ALLERGEN
     Dates: start: 20101124
  8. DIAZEPAM. [Concomitant]
     Active Substance: DIAZEPAM
     Dosage: UP TO THREE TIMES DAILY.
     Dates: start: 20170606, end: 20170611
  9. EPIPEN [Concomitant]
     Active Substance: EPINEPHRINE
     Dosage: USE AS DIRECTED BY HOSPITAL.
     Dates: start: 20160726
  10. HYPROMELLOSE [Concomitant]
     Active Substance: HYPROMELLOSES
     Indication: DRY EYE
     Dosage: 4 GTT DAILY;
     Dates: start: 20170508

REACTIONS (4)
  - Eye pain [Unknown]
  - Muscle spasms [Recovering/Resolving]
  - Facial pain [Unknown]
  - Myalgia [Unknown]

NARRATIVE: CASE EVENT DATE: 20170726
